FAERS Safety Report 12779608 (Version 1)
Quarter: 2016Q3

REPORT INFORMATION
  Report Type: Spontaneous
  Country: US (occurrence: US)
  Receive Date: 20160924
  Receipt Date: 20160924
  Transmission Date: 20161109
  Serious: Yes (Other)
  Sender: FDA-Public Use
  Company Number: None

PATIENT
  Age: 31 Year
  Sex: Female
  Weight: 57.15 kg

DRUGS (1)
  1. AMPHETIMINE SALTS [Suspect]
     Active Substance: AMPHETAMINE ASPARTATE\AMPHETAMINE SULFATE\DEXTROAMPHETAMINE SACCHARATE\DEXTROAMPHETAMINE SULFATE
     Indication: ATTENTION DEFICIT/HYPERACTIVITY DISORDER
     Route: 048
     Dates: start: 20160917, end: 20160924

REACTIONS (6)
  - Feeling abnormal [None]
  - Pain in jaw [None]
  - Product substitution issue [None]
  - Dyspnoea [None]
  - Dyspepsia [None]
  - Fatigue [None]

NARRATIVE: CASE EVENT DATE: 20160923
